FAERS Safety Report 5106904-9 (Version None)
Quarter: 2006Q3

REPORT INFORMATION
  Report Type: 
  Country: None (occurrence: None)
  Receive Date: 20060913
  Receipt Date: 20060830
  Transmission Date: 20061208
  Serious: Yes (Death, Hospitalization)
  Sender: FDA-Public Use
  Company Number: 2006-BP-10079RO

PATIENT
  Age: 61 Year
  Sex: Female

DRUGS (2)
  1. METHOTREXATE [Suspect]
     Indication: RHEUMATOID ARTHRITIS
     Dosage: (25 MG)
     Dates: start: 19990101
  2. ENBREL [Suspect]
     Indication: RHEUMATOID ARTHRITIS
     Dosage: 25 MG TWICE WEEKLY (25 MG)

REACTIONS (5)
  - ARRHYTHMIA [None]
  - METABOLIC ACIDOSIS [None]
  - PNEUMONITIS [None]
  - PULMONARY FIBROSIS [None]
  - RENAL FAILURE [None]
